FAERS Safety Report 6659673-5 (Version None)
Quarter: 2010Q1

REPORT INFORMATION
  Report Type: 
  Country: None (occurrence: None)
  Receive Date: 20100325
  Receipt Date: 20100310
  Transmission Date: 20100710
  Serious: Yes (Congenital Anomaly, Other)
  Sender: FDA-Public Use
  Company Number: IDA-00342

PATIENT

DRUGS (1)
  1. PROPRANOLOL [Suspect]
     Indication: PORTAL HYPERTENSION
     Dosage: TRANSPLACENTAL FORMULATION:  UNKNOWN
     Route: 064

REACTIONS (5)
  - BRADYCARDIA FOETAL [None]
  - CAESAREAN SECTION [None]
  - FOETAL GROWTH RETARDATION [None]
  - MATERNAL DRUGS AFFECTING FOETUS [None]
  - PREMATURE BABY [None]
